FAERS Safety Report 8070389-3 (Version None)
Quarter: 2012Q1

REPORT INFORMATION
  Report Type: 
  Country: None (occurrence: None)
  Receive Date: 20120125
  Receipt Date: 20120119
  Transmission Date: 20120608
  Serious: Yes (Other)
  Sender: FDA-Public Use
  Company Number: US-SANOFI-AVENTIS-2012SA004644

PATIENT
  Age: 66 Year
  Sex: Female

DRUGS (7)
  1. LANTUS [Suspect]
     Indication: TYPE 2 DIABETES MELLITUS
     Dosage: DOSE:40 UNIT(S)
     Route: 058
  2. HUMALOG [Concomitant]
  3. METFORMIN HYDROCHLORIDE [Concomitant]
  4. HYDROCHLOROTHIAZIDE [Concomitant]
  5. ALL OTHER THERAPEUTIC PRODUCTS [Concomitant]
  6. GLUCOPHAGE [Concomitant]
  7. LIPITOR [Concomitant]

REACTIONS (5)
  - DRY SKIN [None]
  - LASER THERAPY [None]
  - BENIGN BONE NEOPLASM [None]
  - WEIGHT DECREASED [None]
  - PHARYNGEAL HYPOAESTHESIA [None]
